FAERS Safety Report 16430662 (Version 1)
Quarter: 2019Q3

REPORT INFORMATION
  Report Type: Spontaneous
  Country: US (occurrence: US)
  Receive Date: 20190613
  Receipt Date: 20190613
  Transmission Date: 20191004
  Serious: No
  Sender: FDA-Public Use
  Company Number: None

PATIENT
  Age: 45 Year
  Sex: Male

DRUGS (5)
  1. RESTORE HAIR GUMMY VITAMINS [Concomitant]
  2. LYRICA [Concomitant]
     Active Substance: PREGABALIN
  3. NAPROXEN. [Suspect]
     Active Substance: NAPROXEN
     Indication: MUSCULOSKELETAL PAIN
     Dosage: ?          QUANTITY:1 TABLET(S);?
     Route: 048
     Dates: start: 20190608, end: 20190610
  4. FAMOTODINE [Concomitant]
  5. DR BERGS RAW WHEAT GRASS JUICE [Concomitant]

REACTIONS (4)
  - Skin discolouration [None]
  - Flatulence [None]
  - Gastric disorder [None]
  - Abdominal distension [None]

NARRATIVE: CASE EVENT DATE: 20190609
